FAERS Safety Report 6058374-4 (Version None)
Quarter: 2009Q1

REPORT INFORMATION
  Report Type: 
  Country: None (occurrence: None)
  Receive Date: 20090127
  Receipt Date: 20090115
  Transmission Date: 20090719
  Serious: Yes (Other)
  Sender: FDA-Public Use
  Company Number: GB-2008-1154

PATIENT
  Age: 70 Year
  Sex: Female
  Weight: 102 kg

DRUGS (3)
  1. NAVELBINE [Suspect]
     Indication: BREAST CANCER
     Dosage: 60 MG UNK IV
     Route: 042
     Dates: start: 20081118, end: 20081119
  2. NAVELBINE [Suspect]
     Indication: BREAST CANCER
     Dosage: 60 MG UNK IV
     Route: 042
     Dates: start: 20081118
  3. AVASTIN [Suspect]
     Indication: BREAST CANCER
     Dosage: 1500 MG UNK IV
     Route: 042
     Dates: start: 20081118

REACTIONS (2)
  - INFUSION SITE PAIN [None]
  - INFUSION SITE PHLEBITIS [None]
